FAERS Safety Report 7935943-5 (Version None)
Quarter: 2011Q4

REPORT INFORMATION
  Report Type: 
  Country: None (occurrence: None)
  Receive Date: 20111123
  Receipt Date: 20111116
  Transmission Date: 20120403
  Serious: Yes (Death, Hospitalization)
  Sender: FDA-Public Use
  Company Number: US-AMGEN-USASP2011060100

PATIENT
  Sex: Male

DRUGS (29)
  1. NPLATE [Suspect]
     Indication: IDIOPATHIC THROMBOCYTOPENIC PURPURA
     Dosage: 250 MUG, UNK
     Route: 058
     Dates: start: 20110429, end: 20110525
  2. ALBUTEROL [Concomitant]
     Dosage: 2.5 MG, Q6H
  3. ASCORBIC ACID [Concomitant]
     Dosage: 1000 MG, QD
  4. ESOMEPRAZOLE [Concomitant]
     Dosage: 40 MG, UNK
     Dates: start: 20110429
  5. PRIMAXIN [Concomitant]
     Dosage: 500 MG, Q8H
     Route: 042
  6. ONDANSETRON [Concomitant]
     Indication: VOMITING
  7. MULTIVITAMIN                       /00097801/ [Concomitant]
  8. SANTYL [Concomitant]
     Dosage: 2 UNK, UNK
     Route: 061
     Dates: start: 20110503
  9. HYDROMORPHONE HCL [Concomitant]
     Dosage: 1.5 MG, Q3H
     Route: 042
  10. URSODIOL [Concomitant]
     Dosage: 250 MG, Q8H
  11. LISPRO INSULIN [Concomitant]
  12. ONDANSETRON [Concomitant]
     Indication: NAUSEA
     Dosage: 4 MG, Q8H
  13. TPN                                /06443901/ [Concomitant]
  14. GLUCAGON [Concomitant]
     Dosage: 1 MG, UNK
  15. HEPARIN [Concomitant]
     Dosage: 1500 UNIT, UNK
  16. MIDAZOLAM [Concomitant]
     Dosage: 5 MG, ONE TIME DOSE
     Route: 042
     Dates: start: 20110502, end: 20110502
  17. IPRATROPIUM BROMIDE [Concomitant]
     Dosage: 0.5 MG, Q6H
  18. COLISTIMETHATE [Concomitant]
     Dosage: 100 MG, UNK
     Route: 042
  19. DEXTROSE [Concomitant]
     Dosage: 12 G, UNK
  20. MIDODRINE HYDROCHLORIDE [Concomitant]
  21. FENTANYL [Concomitant]
     Dosage: 2500 MUG, UNK
  22. METOCLOPRAMIDE [Concomitant]
     Dosage: 10 MG, Q8H
     Route: 042
  23. ZINC SULFATE [Concomitant]
     Dosage: 220 MG, UNK
  24. EPOGEN [Concomitant]
     Dosage: 5000 UNIT, UNK
  25. HYDROXYPROPYL METHYLCELLULOSE [Concomitant]
  26. SODIUM CHLORIDE [Concomitant]
     Dosage: UNK
     Dates: start: 20110418
  27. FOLIC ACID [Concomitant]
     Dosage: 1 MG, QD
     Route: 042
     Dates: start: 20110429
  28. RIFAXIMIN [Concomitant]
     Dosage: 550 MG, Q12H
  29. ALBUMIN (HUMAN) [Concomitant]
     Route: 042

REACTIONS (8)
  - ASCITES [None]
  - PLEURAL EFFUSION [None]
  - URINARY TRACT INFECTION [None]
  - GASTROINTESTINAL HAEMORRHAGE [None]
  - SHUNT STENOSIS [None]
  - SKIN NECROSIS [None]
  - CHOLANGITIS SCLEROSING [None]
  - PNEUMONIA KLEBSIELLA [None]
